FAERS Safety Report 9026103 (Version 3)
Quarter: 2013Q1

REPORT INFORMATION
  Report Type: Spontaneous
  Country: JP (occurrence: JP)
  Receive Date: 20130122
  Receipt Date: 20130225
  Transmission Date: 20140127
  Serious: Yes (Hospitalization)
  Sender: FDA-Public Use
  Company Number: JP-BAYER-2013-007688

PATIENT
  Age: 38 Year
  Sex: Female
  Weight: 47 kg

DRUGS (4)
  1. AVELOX [Suspect]
     Indication: UPPER RESPIRATORY TRACT INFLAMMATION
     Dosage: 400 MG, QD
     Route: 048
     Dates: start: 20130115, end: 20130115
  2. MEDICON [Suspect]
     Indication: UPPER RESPIRATORY TRACT INFLAMMATION
     Dosage: 15 MG, TID
     Route: 048
     Dates: start: 20130108, end: 20130115
  3. BISOLVON [Suspect]
     Indication: UPPER RESPIRATORY TRACT INFLAMMATION
     Dosage: 4 MG, TID
     Route: 048
     Dates: start: 20130108, end: 20130115
  4. CRAVIT [Suspect]
     Indication: UPPER RESPIRATORY TRACT INFLAMMATION
     Dosage: 100 MG, TID
     Route: 048
     Dates: start: 20130108, end: 20130115

REACTIONS (5)
  - Eosinophilic pneumonia chronic [Not Recovered/Not Resolved]
  - Hypersensitivity [Recovering/Resolving]
  - Swelling face [Recovering/Resolving]
  - Eyelid oedema [Recovering/Resolving]
  - Conjunctival hyperaemia [Recovering/Resolving]
